FAERS Safety Report 4825616-X (Version None)
Quarter: 2005Q4

REPORT INFORMATION
  Report Type: 
  Country: None (occurrence: None)
  Receive Date: 20051111
  Receipt Date: 20051021
  Transmission Date: 20060501
  Serious: No
  Sender: FDA-Public Use
  Company Number: US-GLAXOSMITHKLINE-A0579169A

PATIENT
  Age: 62 Year
  Sex: Male

DRUGS (8)
  1. AVODART [Suspect]
     Indication: BENIGN PROSTATIC HYPERPLASIA
     Dosage: .5MG PER DAY
     Route: 048
  2. ATENOLOL [Concomitant]
  3. TIAZAC [Concomitant]
  4. ALPRAZOLAM [Concomitant]
  5. ALLOPURINOL [Concomitant]
  6. ZOCOR [Concomitant]
  7. FLOMAX [Concomitant]
  8. TESTOSTERONE [Concomitant]

REACTIONS (3)
  - NOCTURIA [None]
  - SPERM COUNT DECREASED [None]
  - URINARY RETENTION [None]
